FAERS Safety Report 13579743 (Version 1)
Quarter: 2017Q2

REPORT INFORMATION
  Report Type: Spontaneous
  Country: US (occurrence: US)
  Receive Date: 20170525
  Receipt Date: 20170525
  Transmission Date: 20170830
  Serious: Yes (Other)
  Sender: FDA-Public Use
  Company Number: US-CLINIGEN GROUP PLC/ CLINIGEN HEALTHCARE LTD-E2B_00006205

PATIENT
  Age: 31 Year
  Sex: Male
  Weight: 71.4 kg

DRUGS (13)
  1. FOSCAVIR [Suspect]
     Active Substance: FOSCARNET SODIUM
     Dosage: DOSE: 90 MG/KG TOTAL DAILY DOSE: 90 MG/KG
     Route: 042
     Dates: start: 19950824
  2. DARVOCET-N 100 [Concomitant]
     Active Substance: ACETAMINOPHEN\PROPOXYPHENE NAPSYLATE
     Indication: PAIN
     Dosage: DOSE: 1
     Route: 048
  3. DIFLUCAN [Concomitant]
     Active Substance: FLUCONAZOLE
     Indication: PROPHYLAXIS
     Dosage: DOSE: 100 MG TOTAL DAILY DOSE: 100 MG
     Route: 048
  4. SLOW MAG [Concomitant]
     Active Substance: MAGNESIUM CHLORIDE
     Indication: NUTRITIONAL SUPPLEMENTATION
     Dosage: DOSE: 1  TOTAL DAILY DOSE: 2
     Route: 048
  5. BACTRIM DS [Concomitant]
     Active Substance: SULFAMETHOXAZOLE\TRIMETHOPRIM
     Indication: PROPHYLAXIS
     Dosage: DOSE: 1  TOTAL DAILY DOSE: 1
     Route: 048
  6. CLARITHROMYCIN. [Concomitant]
     Active Substance: CLARITHROMYCIN
     Indication: PROPHYLAXIS
     Dosage: DOSE: 500 MG TOTAL DAILY DOSE: 1000 MG
     Route: 048
  7. MYAMBUTOL [Concomitant]
     Active Substance: ETHAMBUTOL HYDROCHLORIDE
     Indication: NUTRITIONAL SUPPLEMENTATION
     Dosage: DOSE: 400 MG TOTAL DAILY DOSE: 1200 MG
     Route: 048
  8. MEGACE [Concomitant]
     Active Substance: MEGESTROL ACETATE
     Indication: DECREASED APPETITE
     Dosage: DOSE: 80 MG TOTAL DAILY DOSE: 160 MG
     Route: 048
  9. FOSCAVIR [Suspect]
     Active Substance: FOSCARNET SODIUM
     Indication: CYTOMEGALOVIRUS CHORIORETINITIS
     Dosage: DOSE: 60 MG/KG TOTAL DAILY DOSE: 180 MG/KG
     Route: 042
     Dates: start: 19950810, end: 19950823
  10. PEPCID [Concomitant]
     Active Substance: FAMOTIDINE
     Dosage: DOSE: 2  TOTAL DAILY DOSE: 2
     Route: 048
  11. ATIVAN [Concomitant]
     Active Substance: LORAZEPAM
     Indication: ANXIETY
     Route: 048
  12. D5 1/2NORMAL SALINE [Concomitant]
     Indication: FLUID REPLACEMENT
     Dosage: DOSE: 100 ML TOTAL DAILY DOSE: 2400 ML
     Route: 042
     Dates: start: 19950810, end: 19950823
  13. PRENATAL VITAMINS [Concomitant]
     Active Substance: VITAMINS
     Indication: NUTRITIONAL SUPPLEMENTATION
     Dosage: DOSE: 1  TOTAL DAILY DOSE: 1
     Route: 048

REACTIONS (1)
  - Renal tubular acidosis [Recovering/Resolving]

NARRATIVE: CASE EVENT DATE: 19950827
